FAERS Safety Report 22227959 (Version 2)
Quarter: 2023Q2

REPORT INFORMATION
  Report Type: Spontaneous
  Country: US (occurrence: US)
  Receive Date: 20230419
  Receipt Date: 20230420
  Transmission Date: 20230721
  Serious: Yes (Life-Threatening, Other)
  Sender: FDA-Public Use
  Company Number: US-PFIZER INC-PV202300069100

PATIENT
  Age: 55 Year
  Sex: Female

DRUGS (2)
  1. HEPARIN SODIUM [Suspect]
     Active Substance: HEPARIN SODIUM
     Indication: Prophylaxis
     Dosage: UNK (PROPHYLACTIC HEPARIN)
     Route: 058
  2. HEPARIN SODIUM [Suspect]
     Active Substance: HEPARIN SODIUM
     Indication: Pulmonary embolism
     Dosage: UNK (THERAPEUTIC DOSING)

REACTIONS (3)
  - Heparin-induced thrombocytopenia [Unknown]
  - Pulmonary embolism [Recovered/Resolved]
  - Disease progression [Recovered/Resolved]
